FAERS Safety Report 8402783-2 (Version None)
Quarter: 2012Q2

REPORT INFORMATION
  Report Type: 
  Country: None (occurrence: None)
  Receive Date: 20120601
  Receipt Date: 20111107
  Transmission Date: 20120825
  Serious: Yes (Hospitalization, Other)
  Sender: FDA-Public Use
  Company Number: US-ROCHE-1012276

PATIENT
  Sex: Female

DRUGS (6)
  1. DOXORUBICIN HCL [Suspect]
     Indication: BREAST CANCER
     Route: 042
     Dates: start: 20000831
  2. PACLITAXEL [Suspect]
     Indication: BREAST CANCER
     Route: 042
     Dates: start: 20000831
  3. TAMOXIFEN CITRATE [Suspect]
     Indication: BREAST CANCER
     Route: 048
     Dates: start: 20000831
  4. HERCEPTIN [Suspect]
     Indication: BREAST CANCER
     Route: 042
  5. HERCEPTIN [Suspect]
     Dosage: LOADING DOSE
  6. CYCLOPHOSPHAMIDE [Suspect]
     Indication: BREAST CANCER
     Dates: start: 20000831

REACTIONS (6)
  - DIPLOPIA [None]
  - EYE PAIN [None]
  - EYELID PTOSIS [None]
  - MYDRIASIS [None]
  - EXTRAOCULAR MUSCLE PARESIS [None]
  - HEADACHE [None]
